FAERS Safety Report 4972504-4 (Version None)
Quarter: 2006Q1

REPORT INFORMATION
  Report Type: 
  Country: None (occurrence: None)
  Receive Date: 20060216
  Receipt Date: 20060103
  Transmission Date: 20060701
  Serious: No
  Sender: FDA-Public Use
  Company Number: TPA2006A00008

PATIENT
  Age: 68 Year
  Sex: Female
  Weight: 58.9676 kg

DRUGS (9)
  1. ROZEREM [Suspect]
     Indication: INSOMNIA
     Dosage: 8 MG, QHS, PER ORAL
     Route: 048
     Dates: start: 20060102, end: 20060103
  2. LASIX [Concomitant]
  3. PRANDIN [Concomitant]
  4. COREG [Concomitant]
  5. COZAAR [Concomitant]
  6. GLUCOPHAGE XR [Concomitant]
  7. CARDURA [Concomitant]
  8. ZETIA [Concomitant]
  9. AMBIEN CR (ZOLPIDEM TARTRATE) [Concomitant]

REACTIONS (4)
  - BURNING SENSATION [None]
  - INITIAL INSOMNIA [None]
  - MIDDLE INSOMNIA [None]
  - THERAPEUTIC RESPONSE DELAYED [None]
